FAERS Safety Report 7611270-0 (Version None)
Quarter: 2011Q3

REPORT INFORMATION
  Report Type: 
  Country: None (occurrence: None)
  Receive Date: 20110715
  Receipt Date: 20110705
  Transmission Date: 20111222
  Serious: Yes (Death, Hospitalization)
  Sender: FDA-Public Use
  Company Number: FR-PFIZER INC-2011139628

PATIENT
  Age: 56 Year
  Sex: Male
  Weight: 62 kg

DRUGS (21)
  1. FLUOROURACIL [Suspect]
     Dosage: 4420 MG, 2ND COURSE
     Route: 041
     Dates: start: 20091026
  2. FLUOROURACIL [Suspect]
     Dosage: 1840 MG, UNK
     Route: 041
     Dates: start: 20091228
  3. FLUOROURACIL [Suspect]
     Dosage: 1840 MG, UNK
     Route: 041
     Dates: start: 20100111
  4. FLUOROURACIL [Suspect]
     Dosage: 4420 MG, 1ST COURSE
     Route: 041
     Dates: start: 20091012
  5. FLUOROURACIL [Suspect]
     Dosage: 740 MG, 2ND COURSE
     Route: 040
     Dates: start: 20091026
  6. FLUOROURACIL [Suspect]
     Dosage: 4420 MG, 3RD COURSE
     Route: 041
     Dates: start: 20091109
  7. FLUOROURACIL [Suspect]
     Indication: GASTRIC CANCER
     Dosage: 740 MG, 1ST COURSE
     Route: 040
     Dates: start: 20091012
  8. FLUOROURACIL [Suspect]
     Dosage: 740 MG, 3RD COURSE
     Route: 040
     Dates: start: 20091109
  9. FLUOROURACIL [Suspect]
     Dosage: 1840 MG, UNK
     Route: 041
     Dates: start: 20091214
  10. LEUCOVORIN CALCIUM [Suspect]
     Dosage: 740 MG, 2ND COURSE
     Dates: start: 20091026
  11. LEUCOVORIN CALCIUM [Suspect]
     Dosage: 740 MG, 4TH COURSE
     Dates: start: 20091123
  12. IRINOTECAN HCL [Suspect]
     Dosage: 330 MG, 4TH COURSE
     Dates: start: 20091123
  13. FLUOROURACIL [Suspect]
     Dosage: 4420 MG, 4TH COURSE
     Route: 041
     Dates: start: 20091109
  14. FLUOROURACIL [Suspect]
     Dosage: 1840 MG, UNK
     Route: 041
     Dates: start: 20091221
  15. LEUCOVORIN CALCIUM [Suspect]
     Dosage: 740 MG, 3RD COURSE
     Dates: start: 20091109
  16. IRINOTECAN HCL [Suspect]
     Indication: GASTRIC CANCER
     Dosage: 330 MG, 1ST COURSE
     Dates: start: 20091012
  17. IRINOTECAN HCL [Suspect]
     Dosage: 330 MG, 3RD COURSE
     Dates: start: 20091109
  18. FLUOROURACIL [Suspect]
     Dosage: 1840 MG, UNK
     Route: 041
     Dates: start: 20100104
  19. IRINOTECAN HCL [Suspect]
     Dosage: 330 MG, 2ND COURSE
     Dates: start: 20091026
  20. FLUOROURACIL [Suspect]
     Dosage: 740 MG, 4TH COURSE
     Route: 040
     Dates: start: 20091123
  21. LEUCOVORIN CALCIUM [Suspect]
     Indication: GASTRIC CANCER
     Dosage: 740 MG, 1ST COURSE
     Dates: start: 20091012

REACTIONS (2)
  - DISEASE PROGRESSION [None]
  - GASTRIC CANCER [None]
